FAERS Safety Report 21121420 (Version 1)
Quarter: 2022Q3

REPORT INFORMATION
  Report Type: Report from Study
  Country: US (occurrence: US)
  Receive Date: 20220722
  Receipt Date: 20220722
  Transmission Date: 20221026
  Serious: Yes (Other)
  Sender: FDA-Public Use
  Company Number: US-NOVARTISTESTPH-NVSC2022US165030

PATIENT
  Sex: Female
  Weight: 62.14 kg

DRUGS (1)
  1. ENTRESTO [Suspect]
     Active Substance: SACUBITRIL\VALSARTAN
     Indication: Cardiac failure chronic
     Dosage: 50 MG, BID (24/26MG)
     Route: 048

REACTIONS (2)
  - Renal failure [Recovering/Resolving]
  - Blood pressure fluctuation [Not Recovered/Not Resolved]
